FAERS Safety Report 4303793-7 (Version None)
Quarter: 2004Q1

REPORT INFORMATION
  Report Type: 
  Country: None (occurrence: None)
  Receive Date: 20040223
  Receipt Date: 20040209
  Transmission Date: 20041129
  Serious: Yes (Disabling)
  Sender: FDA-Public Use
  Company Number: 203918

PATIENT
  Age: 45 Year
  Sex: Female
  Weight: 63 kg

DRUGS (22)
  1. XOLAIR [Suspect]
     Indication: ASTHMA
     Dosage: 225 MG, Q2W, SUBCUTANEOUS
     Route: 058
     Dates: start: 20031111
  2. ACCOLATE [Concomitant]
  3. ADVAIR DISKUS [Concomitant]
  4. MAXAIR [Concomitant]
  5. ASPIRIN [Concomitant]
  6. CARAFATE [Concomitant]
  7. CLONIDINE [Concomitant]
  8. DILANTIN [Concomitant]
  9. FOLIC ACID [Concomitant]
  10. MACRODANTIN [Concomitant]
  11. MARINOL [Concomitant]
  12. MIRALAX [Concomitant]
  13. METHOTREXATE [Concomitant]
  14. MORPHINE PUMP (MORPHINE SULFATE) [Concomitant]
  15. PLAQUENIL [Concomitant]
  16. NECON (NORETHINDRONE, ETHINYL ESTRADIOL) [Concomitant]
  17. PREVACID [Concomitant]
  18. RANITIDINE [Concomitant]
  19. OXYCODONE HCL [Concomitant]
  20. VIOXX [Concomitant]
  21. REGLAN [Concomitant]
  22. ZOFRAN [Concomitant]

REACTIONS (6)
  - BLISTER [None]
  - DRUG INEFFECTIVE [None]
  - ORAL FUNGAL INFECTION [None]
  - PLEURISY [None]
  - SPEECH DISORDER [None]
  - VAGINAL MYCOSIS [None]
